FAERS Safety Report 7236349-7 (Version None)
Quarter: 2011Q1

REPORT INFORMATION
  Report Type: 
  Country: None (occurrence: None)
  Receive Date: 20110120
  Receipt Date: 20110110
  Transmission Date: 20110831
  Serious: Yes (Other)
  Sender: FDA-Public Use
  Company Number: PHHY2011US03128

PATIENT
  Age: 49 Year
  Sex: Male

DRUGS (1)
  1. PRAMIPEXOLE [Suspect]
     Indication: PARKINSONISM
     Dosage: 4.5 MG/DAY

REACTIONS (2)
  - HYPERSEXUALITY [None]
  - JEALOUS DELUSION [None]
